FAERS Safety Report 21065556 (Version 1)
Quarter: 2022Q3

REPORT INFORMATION
  Report Type: Spontaneous
  Country: US (occurrence: None)
  Receive Date: 20220711
  Receipt Date: 20220711
  Transmission Date: 20221027
  Serious: Yes (Death)
  Sender: FDA-Public Use
  Company Number: None

PATIENT
  Sex: Female

DRUGS (4)
  1. SPRYCEL [Suspect]
     Active Substance: DASATINIB
     Indication: Philadelphia positive chronic myeloid leukaemia
     Dosage: TAKE 1 TABLET BY MOUTH DAILY?
     Route: 048
     Dates: start: 20211001
  2. ELIQUIS [Concomitant]
     Active Substance: APIXABAN
  3. LISINOPRIL [Concomitant]
     Active Substance: LISINOPRIL
  4. SPRYCEL [Concomitant]
     Active Substance: DASATINIB

REACTIONS (1)
  - Death [None]
